FAERS Safety Report 9299197 (Version 1)
Quarter: 2013Q2

REPORT INFORMATION
  Report Type: Spontaneous
  Country: US (occurrence: US)
  Receive Date: 20130520
  Receipt Date: 20130520
  Transmission Date: 20140414
  Serious: Yes (Hospitalization)
  Sender: FDA-Public Use
  Company Number: US-ELI_LILLY_AND_COMPANY-US201305002748

PATIENT
  Age: 63 Year
  Sex: Female

DRUGS (1)
  1. CYMBALTA [Suspect]
     Dosage: UNK, UNKNOWN
     Route: 065

REACTIONS (5)
  - Infection [Unknown]
  - Migraine [Unknown]
  - Speech disorder [Unknown]
  - Pain in jaw [Unknown]
  - Malaise [Unknown]
